FAERS Safety Report 9613297 (Version 3)
Quarter: 2013Q4

REPORT INFORMATION
  Report Type: Spontaneous
  Country: JP (occurrence: JP)
  Receive Date: 20131010
  Receipt Date: 20131202
  Transmission Date: 20140711
  Serious: Yes (Death)
  Sender: FDA-Public Use
  Company Number: JP-BRISTOL-MYERS SQUIBB COMPANY-19481720

PATIENT
  Age: 71 Year
  Sex: Male
  Weight: 40 kg

DRUGS (3)
  1. ERBITUX SOLN FOR INF 5MG/ML [Suspect]
     Indication: LARYNGEAL CANCER
     Dosage: 6TIMES (250 MG/M2,L/1/WK)?340 MG,L IN 1 WK-IV DRIP:21AUG13-18SEP13:28D?18AUG13-18AUG13:550MG/1/1WK
     Route: 041
     Dates: start: 20130818
  2. WARFARIN [Concomitant]
     Indication: COAGULOPATHY
     Route: 048
     Dates: start: 20130920
  3. WARFARIN [Concomitant]
     Indication: ATRIAL FIBRILLATION
     Route: 048
     Dates: start: 20130920

REACTIONS (2)
  - Pneumonia [Fatal]
  - Mucosal inflammation [Fatal]
